FAERS Safety Report 7807314-3 (Version None)
Quarter: 2011Q4

REPORT INFORMATION
  Report Type: 
  Country: None (occurrence: None)
  Receive Date: 20111011
  Receipt Date: 20111004
  Transmission Date: 20120403
  Serious: Yes (Other)
  Sender: FDA-Public Use
  Company Number: GB-GLAXOSMITHKLINE-B0752543A

PATIENT
  Age: 21 Year
  Sex: Female
  Weight: 141 kg

DRUGS (1)
  1. ORLISTAT [Suspect]
     Dates: start: 20110902

REACTIONS (2)
  - BLISTER [None]
  - RASH PRURITIC [None]
